FAERS Safety Report 11886888 (Version 1)
Quarter: 2016Q1

REPORT INFORMATION
  Report Type: Spontaneous
  Country: FR (occurrence: FR)
  Receive Date: 20160104
  Receipt Date: 20160104
  Transmission Date: 20160526
  Serious: Yes (Life-Threatening, Hospitalization, Other)
  Sender: FDA-Public Use
  Company Number: FR-BRISTOL-MYERS SQUIBB COMPANY-10835494

PATIENT
  Age: 0 Day
  Sex: Female
  Weight: 1.16 kg

DRUGS (14)
  1. ZERIT [Suspect]
     Active Substance: STAVUDINE
     Indication: PRODUCT USED FOR UNKNOWN INDICATION
     Dosage: UNK
     Route: 064
  2. TRIFLUCAN [Concomitant]
     Active Substance: FLUCONAZOLE
     Indication: PRODUCT USED FOR UNKNOWN INDICATION
     Dosage: UNK
     Route: 064
  3. INVIRASE [Suspect]
     Active Substance: SAQUINAVIR MESYLATE
     Indication: PRODUCT USED FOR UNKNOWN INDICATION
     Dosage: UNK
     Route: 064
  4. RETROVIR [Suspect]
     Active Substance: ZIDOVUDINE
     Dosage: UNK
     Route: 048
     Dates: start: 19990707, end: 19990718
  5. RETROVIR [Suspect]
     Active Substance: ZIDOVUDINE
     Dosage: 1.4 MG/KG, BID
     Route: 042
     Dates: start: 19990711, end: 19990810
  6. LOXEN [Concomitant]
     Active Substance: NICARDIPINE HYDROCHLORIDE
     Indication: PRODUCT USED FOR UNKNOWN INDICATION
     Dosage: UNK
     Route: 064
  7. NORVIR [Suspect]
     Active Substance: RITONAVIR
     Indication: PRODUCT USED FOR UNKNOWN INDICATION
     Dosage: UNK
     Route: 064
  8. RETROVIR [Suspect]
     Active Substance: ZIDOVUDINE
     Indication: PROPHYLAXIS AGAINST HIV INFECTION
     Dosage: 8 MG/KG, UNK
     Route: 042
     Dates: start: 19990702, end: 19990705
  9. RETROVIR [Suspect]
     Active Substance: ZIDOVUDINE
     Dosage: 6 MG/KG, UNK
     Route: 042
     Dates: start: 19990707, end: 19990710
  10. BACTRIM [Suspect]
     Active Substance: SULFAMETHOXAZOLE\TRIMETHOPRIM
     Indication: PRODUCT USED FOR UNKNOWN INDICATION
     Dosage: UNK
     Route: 064
  11. CELESTENE [Concomitant]
     Active Substance: BETAMETHASONE
     Indication: PRODUCT USED FOR UNKNOWN INDICATION
     Dosage: UNK
     Route: 064
  12. RETROVIR [Suspect]
     Active Substance: ZIDOVUDINE
     Indication: PRODUCT USED FOR UNKNOWN INDICATION
     Route: 065
  13. VIDEX [Suspect]
     Active Substance: DIDANOSINE
     Indication: PRODUCT USED FOR UNKNOWN INDICATION
     Dosage: UNK
     Route: 064
  14. SALBUTAMOL [Concomitant]
     Active Substance: ALBUTEROL
     Indication: PRODUCT USED FOR UNKNOWN INDICATION
     Dosage: UNK
     Route: 064

REACTIONS (10)
  - Colectomy total [Not Recovered/Not Resolved]
  - Alanine aminotransferase increased [Not Recovered/Not Resolved]
  - Blood creatinine increased [Not Recovered/Not Resolved]
  - Necrotising colitis [Recovered/Resolved with Sequelae]
  - Thrombocytosis [Not Recovered/Not Resolved]
  - Speech disorder [Not Recovered/Not Resolved]
  - Foetal exposure during pregnancy [Recovered/Resolved]
  - Enterocolitis [Recovered/Resolved with Sequelae]
  - Premature baby [Not Recovered/Not Resolved]
  - Ileostomy [Not Recovered/Not Resolved]

NARRATIVE: CASE EVENT DATE: 19990702
